FAERS Safety Report 6584441-2 (Version None)
Quarter: 2010Q1

REPORT INFORMATION
  Report Type: 
  Country: None (occurrence: None)
  Receive Date: 20100216
  Receipt Date: 20100210
  Transmission Date: 20100710
  Serious: No
  Sender: FDA-Public Use
  Company Number: US-ABBOTT-10P-163-0625515-00

PATIENT
  Sex: Female
  Weight: 84.898 kg

DRUGS (20)
  1. SIMCOR [Suspect]
     Indication: BLOOD CHOLESTEROL INCREASED
     Dosage: 1 - 500/20 MG TABLET DAILY AT NIGHT
     Dates: start: 20100205
  2. SIMCOR [Suspect]
     Dosage: 500/20
  3. ZYPREXA [Concomitant]
     Indication: DRUG USE FOR UNKNOWN INDICATION
  4. MVT [Concomitant]
     Indication: DRUG USE FOR UNKNOWN INDICATION
  5. OMEPRAZOLE [Concomitant]
     Indication: DRUG USE FOR UNKNOWN INDICATION
  6. LORATADINE [Concomitant]
     Indication: DRUG USE FOR UNKNOWN INDICATION
  7. 2 OTHERS NOT REPORTED [Concomitant]
     Indication: DRUG USE FOR UNKNOWN INDICATION
  8. VALPROIC ACID [Concomitant]
     Indication: DRUG USE FOR UNKNOWN INDICATION
  9. VALTREX [Concomitant]
     Indication: DRUG USE FOR UNKNOWN INDICATION
  10. TOPROL-XL [Concomitant]
     Indication: DRUG USE FOR UNKNOWN INDICATION
  11. DIOVAN [Concomitant]
     Indication: DRUG USE FOR UNKNOWN INDICATION
  12. SINGULAIR [Concomitant]
     Indication: DRUG USE FOR UNKNOWN INDICATION
  13. FLEXERIL [Concomitant]
     Indication: DRUG USE FOR UNKNOWN INDICATION
  14. ADDERALL 30 [Concomitant]
     Indication: DRUG USE FOR UNKNOWN INDICATION
  15. MORPHINE [Concomitant]
     Indication: DRUG USE FOR UNKNOWN INDICATION
  16. ENABLEX [Concomitant]
     Indication: DRUG USE FOR UNKNOWN INDICATION
  17. VIT C [Concomitant]
     Indication: DRUG USE FOR UNKNOWN INDICATION
  18. ZOLOFT [Concomitant]
     Indication: DRUG USE FOR UNKNOWN INDICATION
  19. METFORMIN HCL [Concomitant]
     Indication: DRUG USE FOR UNKNOWN INDICATION
  20. VALIUM [Concomitant]
     Indication: DRUG USE FOR UNKNOWN INDICATION

REACTIONS (3)
  - FLUSHING [None]
  - NAUSEA [None]
  - SKIN BURNING SENSATION [None]
